FAERS Safety Report 16799336 (Version 1)
Quarter: 2019Q3

REPORT INFORMATION
  Report Type: Report from Study
  Country: DE (occurrence: DE)
  Receive Date: 20190912
  Receipt Date: 20190912
  Transmission Date: 20191005
  Serious: Yes (Hospitalization, Other)
  Sender: FDA-Public Use
  Company Number: DE-PFIZER INC-2019390063

PATIENT
  Age: 54 Year
  Sex: Female

DRUGS (8)
  1. ORENCIA [Suspect]
     Active Substance: ABATACEPT
     Dosage: 125 MG, UNK
     Route: 065
     Dates: start: 20121101
  2. NO SUBJECT DRUG [Suspect]
     Active Substance: UNSPECIFIED INGREDIENT
     Dosage: NO DOSE GIVEN
  3. XELJANZ [Concomitant]
     Active Substance: TOFACITINIB CITRATE
     Dosage: 10 MG, UNK
     Route: 065
     Dates: start: 20181101
  4. ENBREL [Concomitant]
     Active Substance: ETANERCEPT
     Dosage: 50 MG, UNK
     Route: 065
     Dates: start: 20100101
  5. TOCILIZUMAB. [Suspect]
     Active Substance: TOCILIZUMAB
     Dosage: 640 MG, UNK
     Route: 065
     Dates: start: 20120401
  6. HUMIRA [Concomitant]
     Active Substance: ADALIMUMAB
     Dosage: 40 MG, UNK
     Route: 065
     Dates: start: 20100701
  7. METHOTREXATE SODIUM. [Suspect]
     Active Substance: METHOTREXATE SODIUM
     Dosage: UNK
     Route: 065
  8. RITUXIMAB. [Suspect]
     Active Substance: RITUXIMAB
     Dosage: 1000 MG, UNK
     Route: 065
     Dates: start: 20110801

REACTIONS (5)
  - Osteolysis [Unknown]
  - Hypergammaglobulinaemia benign monoclonal [Not Recovered/Not Resolved]
  - Spinal compression fracture [Unknown]
  - Pancreatic cyst [Unknown]
  - Plasma cell myeloma [Recovered/Resolved]

NARRATIVE: CASE EVENT DATE: 20181011
